FAERS Safety Report 14828672 (Version 1)
Quarter: 2018Q2

REPORT INFORMATION
  Report Type: Spontaneous
  Country: DK (occurrence: DK)
  Receive Date: 20180430
  Receipt Date: 20180430
  Transmission Date: 20180711
  Serious: Yes (Life-Threatening, Hospitalization)
  Sender: FDA-Public Use
  Company Number: DK-B.I. PHARMACEUTICALS,INC./RIDGEFIELD-2018-12-001541

PATIENT
  Age: 39 Year
  Sex: Female
  Weight: 60 kg

DRUGS (8)
  1. DIVISUN [Concomitant]
     Indication: VITAMIN SUPPLEMENTATION
     Dosage: STRENGTH: 20 MICROGRAM
     Route: 048
     Dates: start: 20171201
  2. VIPIDIA [Concomitant]
     Active Substance: ALOGLIPTIN BENZOATE
     Indication: TYPE 2 DIABETES MELLITUS
     Dosage: STRENGTH: 25 MG
     Route: 048
     Dates: start: 20171107, end: 20180208
  3. FERRO DURETTER [Concomitant]
     Indication: IRON DEFICIENCY
     Dosage: .  STRENGTH: 100 MG
     Route: 048
     Dates: start: 20171201, end: 20180214
  4. FURIX [Concomitant]
     Active Substance: FUROSEMIDE
     Indication: DIURETIC THERAPY
     Dosage: STRENGTH: 20 MG
     Route: 048
     Dates: start: 20171201
  5. SYNJARDY [Suspect]
     Active Substance: EMPAGLIFLOZIN\METFORMIN HYDROCHLORIDE
     Indication: TYPE 2 DIABETES MELLITUS
     Dosage: STRENGTH: 5 MG/1000 MG
     Route: 048
     Dates: start: 20171206, end: 20180202
  6. PRIMCILLIN [Concomitant]
     Active Substance: PENICILLIN V POTASSIUM
     Indication: PNEUMONIA
     Dosage: STRENGTH: 800 MG
     Route: 048
     Dates: start: 20180201, end: 20180202
  7. PANTOPRAZOL ^SANDOZ^ [Concomitant]
     Indication: DYSPEPSIA
     Dosage: STRENGTH: 20 MG
     Route: 048
     Dates: start: 20171116
  8. LAMICTAL [Concomitant]
     Active Substance: LAMOTRIGINE
     Indication: EPILEPSY
     Dosage: FROM 27-MAR-2017 TO 18-APR-2017: 25 MG , FROM 18-APR-2017 TO 19-JUN--2017: 1
     Route: 048
     Dates: start: 20170327

REACTIONS (3)
  - Hyperventilation [Recovered/Resolved]
  - Depressed level of consciousness [Recovered/Resolved]
  - Diabetic ketoacidosis [Recovered/Resolved]

NARRATIVE: CASE EVENT DATE: 20180202
